FAERS Safety Report 4827276-0 (Version None)
Quarter: 2005Q4

REPORT INFORMATION
  Report Type: 
  Country: None (occurrence: None)
  Receive Date: 20051114
  Receipt Date: 20051031
  Transmission Date: 20060501
  Serious: Yes (Other)
  Sender: FDA-Public Use
  Company Number: 2005AC01741

PATIENT
  Age: 34 Year
  Sex: Female

DRUGS (3)
  1. CANDESARTAN [Suspect]
     Indication: HYPERTENSION
     Dosage: STOPPED AT 25 WEEKS GESTATION.
     Route: 048
  2. EBRANTIL [Concomitant]
     Indication: HYPERTENSION
     Dosage: STOPPED AT 26 WEEKS GESTATION.
  3. HYDROCHLOROTHIAZIDE [Concomitant]
     Indication: HYPERTENSION
     Dosage: STOPPED AT 26 WEEKS GESTATION.

REACTIONS (6)
  - CAESAREAN SECTION [None]
  - CHORIOAMNIONITIS [None]
  - DRUG EXPOSURE DURING PREGNANCY [None]
  - PREGNANCY [None]
  - PREMATURE BABY [None]
  - PREMATURE RUPTURE OF MEMBRANES [None]
